FAERS Safety Report 9791697 (Version 1)
Quarter: 2014Q1

REPORT INFORMATION
  Report Type: Spontaneous
  Country: NL (occurrence: NL)
  Receive Date: 20140102
  Receipt Date: 20140102
  Transmission Date: 20141002
  Serious: Yes (Other)
  Sender: FDA-Public Use
  Company Number: NL-AMGEN-NLDSP2013091142

PATIENT
  Age: 56 Year
  Sex: Female

DRUGS (4)
  1. NEULASTA [Suspect]
     Indication: PRODUCT USED FOR UNKNOWN INDICATION
     Dosage: 6 MG, Q3WK
     Route: 058
     Dates: start: 20131114
  2. DEXAMETHASON                       /00016001/ [Concomitant]
     Dosage: UNK
  3. GRANISETRON [Concomitant]
     Dosage: UNK
  4. MAGNESIUM SULPHATE                 /07507001/ [Concomitant]
     Dosage: UNK

REACTIONS (4)
  - Abdominal pain [Unknown]
  - Musculoskeletal pain [Unknown]
  - Sleep disorder due to general medical condition, insomnia type [Unknown]
  - Mobility decreased [Unknown]
